FAERS Safety Report 9402949 (Version 3)
Quarter: 2014Q1

REPORT INFORMATION
  Report Type: Spontaneous
  Country: IE (occurrence: GB)
  Receive Date: 20130716
  Receipt Date: 20140310
  Transmission Date: 20141002
  Serious: Yes (Death)
  Sender: FDA-Public Use
  Company Number: GB-TEVA-417572ISR

PATIENT
  Age: 69 Year
  Sex: Female

DRUGS (9)
  1. OLANZAPINE [Suspect]
     Dosage: 10 MILLIGRAM DAILY; EACH EVENING
  2. SERTRALINE [Suspect]
     Dosage: 150 MILLIGRAM DAILY;
  3. AMLODIPINE [Concomitant]
     Dosage: 5 MILLIGRAM DAILY;
  4. ASPIRIN [Concomitant]
     Dosage: 75 MILLIGRAM DAILY;
  5. CALCICHEW D3 FORTE [Concomitant]
  6. CARBIMAZOLE [Concomitant]
     Dosage: 5 MILLIGRAM DAILY;
  7. DIAZEPAM [Concomitant]
     Dosage: 1 MILLIGRAM DAILY; EACH EVENING
  8. SIMVASTATIN [Concomitant]
     Dosage: 40 MILLIGRAM DAILY; EACH EVENING
  9. DONEPEZIL [Concomitant]

REACTIONS (4)
  - Death [Fatal]
  - Fall [Fatal]
  - Drug level increased [Unknown]
  - Overdose [Unknown]
